FAERS Safety Report 5613683-5 (Version None)
Quarter: 2008Q1

REPORT INFORMATION
  Report Type: 
  Country: None (occurrence: None)
  Receive Date: 20080205
  Receipt Date: 20080122
  Transmission Date: 20080703
  Serious: Yes (Hospitalization)
  Sender: FDA-Public Use
  Company Number: US-ELI_LILLY_AND_COMPANY-US200801000491

PATIENT
  Age: 56 Year
  Sex: Female

DRUGS (1)
  1. FORTEO [Suspect]

REACTIONS (6)
  - COAGULATION TEST ABNORMAL [None]
  - CONTUSION [None]
  - CONVULSION [None]
  - FALL [None]
  - HOSPITALISATION [None]
  - HOT FLUSH [None]
